FAERS Safety Report 10877480 (Version 1)
Quarter: 2015Q1

REPORT INFORMATION
  Report Type: Spontaneous
  Country: LB (occurrence: None)
  Receive Date: 20150224
  Receipt Date: 20150224
  Transmission Date: 20150721
  Serious: Yes (Other)
  Sender: FDA-Public Use
  Company Number: 2015RR-93049

PATIENT
  Age: 28 Year
  Sex: Female

DRUGS (5)
  1. NITROFURANTOIN (NITROFURANTOIN) [Suspect]
     Active Substance: NITROFURANTOIN
     Indication: URINARY TRACT INFECTION BACTERIAL
  2. FLUVOXAMINE (FLUVOXAMINE) [Suspect]
     Active Substance: FLUVOXAMINE
     Indication: HYPERTONIC BLADDER
  3. CIPROFLOXACIN (CIPROFLOXACIN) [Suspect]
     Active Substance: CIPROFLOXACIN
     Indication: ESCHERICHIA URINARY TRACT INFECTION
  4. FLUVOXAMINE (FLUVOXAMINE) [Suspect]
     Active Substance: FLUVOXAMINE
     Indication: URINARY TRACT INFECTION BACTERIAL
  5. NITROFURANTOIN (NITROFURANTOIN) [Suspect]
     Active Substance: NITROFURANTOIN
     Indication: HYPERTONIC BLADDER

REACTIONS (8)
  - Urinary tract infection [None]
  - Cystitis interstitial [None]
  - Pyuria [None]
  - Drug resistance [None]
  - Pathogen resistance [None]
  - Escherichia test positive [None]
  - Bacteriuria [None]
  - Depression [None]
